FAERS Safety Report 7011418-5 (Version None)
Quarter: 2010Q3

REPORT INFORMATION
  Report Type: 
  Country: None (occurrence: None)
  Receive Date: 20100922
  Receipt Date: 20100922
  Transmission Date: 20110219
  Serious: Yes (Hospitalization)
  Sender: FDA-Public Use
  Company Number: None

PATIENT
  Age: 72 Year
  Sex: Male
  Weight: 85 kg

DRUGS (8)
  1. DECITABINE - 0.2MG / KG SUB-Q INJECTION 3X PER WEEK [Suspect]
     Indication: MYELODYSPLASTIC SYNDROME
     Dosage: 16.8MG SQ INJECTION 3X/WK
     Route: 058
     Dates: start: 20100920
  2. ACYCLOVIR SODIUM [Concomitant]
  3. CIPRO [Concomitant]
  4. DESFERAL [Concomitant]
  5. PROTEGRA [Concomitant]
  6. AVODART [Concomitant]
  7. NEXIUM [Concomitant]
  8. DOCUSATE SODIUM [Concomitant]

REACTIONS (4)
  - EPIDIDYMITIS [None]
  - NEUTROPENIA [None]
  - ORCHITIS [None]
  - PYREXIA [None]
